FAERS Safety Report 7631435-1 (Version None)
Quarter: 2011Q3

REPORT INFORMATION
  Report Type: 
  Country: None (occurrence: None)
  Receive Date: 20110725
  Receipt Date: 20110712
  Transmission Date: 20111222
  Serious: Yes (Other)
  Sender: FDA-Public Use
  Company Number: CA-ELI_LILLY_AND_COMPANY-CA201107003019

PATIENT
  Sex: Male

DRUGS (10)
  1. LAMOTRIGINE [Concomitant]
  2. ZYPREXA [Suspect]
     Indication: MAJOR DEPRESSION
     Dosage: 7.5 MG, QD
  3. ZYPREXA [Suspect]
     Dosage: 5 MG, BID
  4. ZIPRASIDONE HYDROCHLORIDE [Concomitant]
  5. VARENICLINE TARTRATE [Concomitant]
  6. CITALOPRAM HYDROBROMIDE [Concomitant]
  7. IMOVANE [Concomitant]
  8. WELLBUTRIN [Concomitant]
  9. RISPERDAL [Concomitant]
  10. EFFEXOR [Concomitant]

REACTIONS (7)
  - OPERATIVE HAEMORRHAGE [None]
  - DIABETES MELLITUS [None]
  - BLOOD CHOLESTEROL INCREASED [None]
  - CONVULSION [None]
  - BLOOD TRIGLYCERIDES INCREASED [None]
  - HYPERGLYCAEMIA [None]
  - WEIGHT INCREASED [None]
